FAERS Safety Report 7064951-4 (Version None)
Quarter: 2010Q4

REPORT INFORMATION
  Report Type: 
  Country: None (occurrence: None)
  Receive Date: 20101022
  Receipt Date: 20101022
  Transmission Date: 20110411
  Serious: Yes (Hospitalization)
  Sender: FDA-Public Use
  Company Number: None

PATIENT
  Age: 17 Year
  Sex: Female

DRUGS (1)
  1. IFOSFAMIDE [Suspect]
     Indication: SARCOMA
     Dosage: 3GM/M2 ONCE IV BOLUS
     Route: 040
     Dates: start: 20090423, end: 20090423

REACTIONS (5)
  - CONVULSION [None]
  - ENCEPHALOPATHY [None]
  - SOMNOLENCE [None]
  - UNRESPONSIVE TO STIMULI [None]
  - URINARY INCONTINENCE [None]
